FAERS Safety Report 18981518 (Version 1)
Quarter: 2021Q1

REPORT INFORMATION
  Report Type: Other
  Country: US (occurrence: US)
  Receive Date: 20210308
  Receipt Date: 20210308
  Transmission Date: 20210420
  Serious: Yes (Hospitalization, Other)
  Sender: FDA-Public Use
  Company Number: US-ROCHE-2776670

PATIENT
  Age: 47 Year
  Sex: Female

DRUGS (1)
  1. OCREVUS [Suspect]
     Active Substance: OCRELIZUMAB
     Indication: RELAPSING MULTIPLE SCLEROSIS
     Route: 042
     Dates: start: 20190225

REACTIONS (8)
  - COVID-19 [Recovered/Resolved]
  - Drug hypersensitivity [Unknown]
  - Burning sensation [Not Recovered/Not Resolved]
  - Hepatic enzyme increased [Unknown]
  - Hyperaesthesia [Not Recovered/Not Resolved]
  - Fatigue [Unknown]
  - Nervous system disorder [Not Recovered/Not Resolved]
  - Hypoaesthesia [Not Recovered/Not Resolved]

NARRATIVE: CASE EVENT DATE: 202008
